FAERS Safety Report 5327425-4 (Version None)
Quarter: 2007Q2

REPORT INFORMATION
  Report Type: 
  Country: None (occurrence: None)
  Receive Date: 20070514
  Receipt Date: 20070422
  Transmission Date: 20071010
  Serious: Yes (Other)
  Sender: FDA-Public Use
  Company Number: 2007S1003547

PATIENT
  Age: 59 Year
  Sex: Female
  Weight: 81.6475 kg

DRUGS (5)
  1. TAMOXIFEN CITRATE [Suspect]
     Indication: BREAST CANCER
     Dosage: 20 MG; DAILY; ORAL
     Route: 048
     Dates: start: 20060901
  2. LEVOTHYROXINE (CON.) [Concomitant]
  3. ALENDRONATE SODIUM (CON.) [Concomitant]
  4. METOPROLOL SUCCINATE (CON.) [Concomitant]
  5. LOSARTAN POTASSIUM (CON.) [Concomitant]

REACTIONS (5)
  - DIPLOPIA [None]
  - HEADACHE [None]
  - IVTH NERVE PARESIS [None]
  - NAUSEA [None]
  - PAIN [None]
